FAERS Safety Report 7178090-5 (Version None)
Quarter: 2010Q4

REPORT INFORMATION
  Report Type: 
  Country: None (occurrence: None)
  Receive Date: 20101220
  Receipt Date: 20101215
  Transmission Date: 20110411
  Serious: Yes (Hospitalization)
  Sender: FDA-Public Use
  Company Number: A0899920A

PATIENT
  Age: 84 Year
  Sex: Male

DRUGS (10)
  1. ADVAIR [Suspect]
     Indication: BRONCHITIS
     Dosage: 1PUFF TWICE PER DAY
     Route: 055
     Dates: start: 20010101
  2. ALBUTEROL [Concomitant]
  3. NEBULIZER [Concomitant]
  4. COZAAR [Concomitant]
  5. LIPITOR [Concomitant]
  6. FINASTERIDE [Concomitant]
  7. ASPIRIN [Concomitant]
  8. ALPHAGAN [Concomitant]
  9. XALATAN [Concomitant]
  10. DORZOLAMIDE [Concomitant]

REACTIONS (6)
  - BLINDNESS [None]
  - BRONCHITIS [None]
  - DYSPNOEA [None]
  - GLAUCOMA [None]
  - INTRAOCULAR PRESSURE TEST ABNORMAL [None]
  - VISUAL IMPAIRMENT [None]
